FAERS Safety Report 13581763 (Version 1)
Quarter: 2017Q2

REPORT INFORMATION
  Report Type: Report from Study
  Country: US (occurrence: US)
  Receive Date: 20170525
  Receipt Date: 20170525
  Transmission Date: 20170830
  Serious: Yes (Hospitalization, Other)
  Sender: FDA-Public Use
  Company Number: US-TEVA-686427USA

PATIENT
  Age: 53 Year
  Sex: Female

DRUGS (10)
  1. COPAXONE [Suspect]
     Active Substance: GLATIRAMER ACETATE
     Indication: MULTIPLE SCLEROSIS
     Dosage: THRICE A WEEK
     Route: 058
     Dates: start: 20141119
  2. COPAXONE [Suspect]
     Active Substance: GLATIRAMER ACETATE
     Dosage: THRICE A WEEK
     Route: 058
     Dates: start: 20150211, end: 201608
  3. VITAMIN B COMPLEX [Concomitant]
     Active Substance: CYANOCOBALAMIN\DEXPANTHENOL\NIACINAMIDE\PYRIDOXINE HYDROCHLORIDE\RIBOFLAVIN 5^-PHOSPHATE SODIUM\THIAMINE HYDROCHLORIDE\VITAMIN B COMPLEX
  4. PROBIOTIC [Concomitant]
     Active Substance: PROBIOTICS NOS
  5. MULTIVITAMIN [Concomitant]
     Active Substance: VITAMINS
  6. MELATONIN [Concomitant]
     Active Substance: MELATONIN
  7. ADVIL [Concomitant]
     Active Substance: IBUPROFEN
  8. VOTRIENT [Concomitant]
     Active Substance: PAZOPANIB HYDROCHLORIDE
  9. ZYRTEC [Concomitant]
     Active Substance: CETIRIZINE HYDROCHLORIDE
  10. FISH OIL [Concomitant]
     Active Substance: FISH OIL

REACTIONS (4)
  - Leiomyosarcoma [Not Recovered/Not Resolved]
  - Uterine cancer [Unknown]
  - Uterine leiomyoma [Unknown]
  - Pain [Unknown]

NARRATIVE: CASE EVENT DATE: 20160815
